FAERS Safety Report 19906088 (Version 1)
Quarter: 2021Q4

REPORT INFORMATION
  Report Type: Spontaneous
  Country: US (occurrence: US)
  Receive Date: 20211001
  Receipt Date: 20211001
  Transmission Date: 20220303
  Serious: Yes (Other)
  Sender: FDA-Public Use
  Company Number: US-HIKMA PHARMACEUTICALS USA INC.-US-H14001-21-04234

PATIENT
  Age: 8 Year
  Sex: Male

DRUGS (1)
  1. BLEOMYCIN [Suspect]
     Active Substance: BLEOMYCIN SULFATE
     Indication: Lymphangioma
     Dosage: UNKNOWN
     Route: 065

REACTIONS (3)
  - Ear haemorrhage [Unknown]
  - Ear pain [Unknown]
  - Lymphangioma [Unknown]
